FAERS Safety Report 15286426 (Version 3)
Quarter: 2018Q4

REPORT INFORMATION
  Report Type: Report from Study
  Country: US (occurrence: US)
  Receive Date: 20180816
  Receipt Date: 20181228
  Transmission Date: 20190204
  Serious: No
  Sender: FDA-Public Use
  Company Number: US-SA-2018SA225863

PATIENT
  Age: 44 Year
  Sex: Female

DRUGS (1)
  1. TERIFLUNOMIDE. [Suspect]
     Active Substance: TERIFLUNOMIDE
     Indication: MULTIPLE SCLEROSIS
     Dosage: 14 MG, QD
     Route: 048
     Dates: start: 20180614, end: 201809

REACTIONS (8)
  - Product dose omission [Unknown]
  - Fatigue [Unknown]
  - Headache [Recovered/Resolved]
  - Vertigo [Unknown]
  - Balance disorder [Recovered/Resolved]
  - Dysgeusia [Recovered/Resolved]
  - Asthenia [Unknown]
  - Liver function test increased [Recovered/Resolved]
